FAERS Safety Report 14134142 (Version 1)
Quarter: 2017Q4

REPORT INFORMATION
  Report Type: Spontaneous
  Country: US (occurrence: None)
  Receive Date: 20171027
  Receipt Date: 20171027
  Transmission Date: 20180321
  Serious: Yes (Hospitalization)
  Sender: FDA-Public Use
  Company Number: None

PATIENT
  Age: 31 Year
  Sex: Male
  Weight: 106.37 kg

DRUGS (1)
  1. ACETAMINOPHEN. [Suspect]
     Active Substance: ACETAMINOPHEN
     Indication: SURGERY
     Dates: start: 20170803, end: 20170803

REACTIONS (3)
  - Tremor [None]
  - Seizure [None]
  - Tachycardia [None]

NARRATIVE: CASE EVENT DATE: 20170803
